FAERS Safety Report 7396372-9 (Version None)
Quarter: 2011Q2

REPORT INFORMATION
  Report Type: 
  Country: None (occurrence: None)
  Receive Date: 20110406
  Receipt Date: 20110324
  Transmission Date: 20111010
  Serious: Yes (Hospitalization, Other)
  Sender: FDA-Public Use
  Company Number: GR-ELI_LILLY_AND_COMPANY-GR201103007575

PATIENT
  Age: 53 Year
  Sex: Male
  Weight: 70 kg

DRUGS (3)
  1. EFFIENT [Suspect]
     Dosage: 10 MG, QD
     Route: 048
     Dates: start: 20110201
  2. EFFIENT [Suspect]
     Indication: ANGIOPLASTY
     Dosage: 60 MG, LOADING DOSE
  3. SALOSPIR [Concomitant]
     Indication: ANGIOPLASTY
     Dosage: 100 MG, UNK
     Route: 048
     Dates: start: 20110201

REACTIONS (1)
  - ACUTE MYOCARDIAL INFARCTION [None]
